FAERS Safety Report 5078834-2 (Version None)
Quarter: 2006Q3

REPORT INFORMATION
  Report Type: 
  Country: None (occurrence: None)
  Receive Date: 20060814
  Receipt Date: 20060522
  Transmission Date: 20061208
  Serious: Yes (Hospitalization)
  Sender: FDA-Public Use
  Company Number: DE-ABBOTT-06P-062-0334124-00

PATIENT
  Sex: Male
  Weight: 67 kg

DRUGS (22)
  1. ZEMPLAR [Suspect]
     Indication: HYPERPARATHYROIDISM SECONDARY
     Dates: start: 20051115, end: 20060112
  2. ZEMPLAR [Suspect]
     Dates: start: 20060119
  3. POLYBION [Concomitant]
     Indication: DRUG USE FOR UNKNOWN INDICATION
     Dosage: INTRAVENOUS AFTER DIALYSIS
     Route: 042
  4. ORNIDAZOLE [Concomitant]
     Indication: DRUG USE FOR UNKNOWN INDICATION
     Dates: start: 20051229
  5. CYNT [Concomitant]
     Indication: DRUG USE FOR UNKNOWN INDICATION
     Dates: start: 20051220
  6. ALUMINIUM CHLORHYDROXIDE-COMPLEX [Concomitant]
     Indication: HYPERPARATHYROIDISM SECONDARY
     Dates: start: 20060225
  7. ALUMINIUM CHLORHYDROXIDE-COMPLEX [Concomitant]
     Route: 048
     Dates: start: 20050407
  8. AMLODIPINE BESYLATE [Concomitant]
     Indication: DRUG USE FOR UNKNOWN INDICATION
     Dates: start: 20060304
  9. SEVELAMER HYDROCHLORIDE [Concomitant]
     Indication: DRUG USE FOR UNKNOWN INDICATION
     Dates: start: 20060314
  10. PHOS EX 950 [Concomitant]
     Indication: HYPERPARATHYROIDISM SECONDARY
     Route: 048
     Dates: start: 20050118, end: 20060125
  11. DECOSTRIOL [Concomitant]
     Indication: HYPERPARATHYROIDISM SECONDARY
     Route: 048
     Dates: end: 20051114
  12. VITARENAL [Concomitant]
     Indication: DRUG USE FOR UNKNOWN INDICATION
     Route: 048
     Dates: start: 20040901
  13. AMLODIPINE BESYLATE [Concomitant]
     Route: 048
     Dates: start: 20040901
  14. BICA NORM [Concomitant]
     Indication: DRUG USE FOR UNKNOWN INDICATION
     Route: 048
     Dates: start: 20040901
  15. METOPROLOL SUCCINATE [Concomitant]
     Indication: DRUG USE FOR UNKNOWN INDICATION
     Route: 048
     Dates: start: 20040901
  16. PANTOPRAZOLE SODIUM [Concomitant]
     Indication: DRUG USE FOR UNKNOWN INDICATION
     Route: 048
     Dates: start: 20041027
  17. SODIUM POLYSTYRENE SULFONATE [Concomitant]
     Indication: DRUG USE FOR UNKNOWN INDICATION
     Route: 048
     Dates: start: 20041127
  18. DELIX PROTECT [Concomitant]
     Indication: DRUG USE FOR UNKNOWN INDICATION
     Route: 048
     Dates: start: 20050104
  19. CARDULAR PP 4 MG [Concomitant]
     Indication: DRUG USE FOR UNKNOWN INDICATION
     Route: 048
     Dates: start: 20060215
  20. DIMETINDENE MALEATE [Concomitant]
     Indication: DRUG USE FOR UNKNOWN INDICATION
     Route: 048
     Dates: start: 20050303
  21. FERRIC SODIUM GLUCONATE COMPLEX [Concomitant]
     Indication: DRUG USE FOR UNKNOWN INDICATION
     Route: 042
     Dates: end: 20051215
  22. EPOETIN BETA [Concomitant]
     Indication: DRUG USE FOR UNKNOWN INDICATION
     Route: 042

REACTIONS (3)
  - ELECTROLYTE IMBALANCE [None]
  - HEPATITIS ALCOHOLIC [None]
  - INCISIONAL HERNIA [None]
